FAERS Safety Report 5250935-5 (Version None)
Quarter: 2007Q1

REPORT INFORMATION
  Report Type: 
  Country: None (occurrence: None)
  Receive Date: 20070228
  Receipt Date: 20060728
  Transmission Date: 20070707
  Serious: No
  Sender: FDA-Public Use
  Company Number: US-GLAXOSMITHKLINE-A0613976A

PATIENT
  Age: 69 Year
  Sex: Female

DRUGS (6)
  1. LAMICTAL [Suspect]
     Dosage: 150MG TWICE PER DAY
     Route: 048
  2. LIPITOR [Concomitant]
  3. DILANTIN [Concomitant]
  4. VALIUM [Concomitant]
  5. METOPROLOL SUCCINATE [Concomitant]
  6. RANITIDINE [Concomitant]

REACTIONS (1)
  - CONFUSIONAL STATE [None]
